FAERS Safety Report 17151175 (Version 1)
Quarter: 2019Q4

REPORT INFORMATION
  Report Type: Report from Study
  Country: US (occurrence: US)
  Receive Date: 20191213
  Receipt Date: 20191213
  Transmission Date: 20200122
  Serious: Yes (Death)
  Sender: FDA-Public Use
  Company Number: US-ASTRAZENECA-2019SF79741

PATIENT
  Age: 26365 Day
  Sex: Male
  Weight: 80.3 kg

DRUGS (2)
  1. TAGRISSO [Suspect]
     Active Substance: OSIMERTINIB
     Indication: NON-SMALL CELL LUNG CANCER
     Route: 048
     Dates: start: 20190715
  2. MULTIVITAMINS [Concomitant]
     Active Substance: VITAMINS

REACTIONS (1)
  - Death [Fatal]

NARRATIVE: CASE EVENT DATE: 20191208
